FAERS Safety Report 6105115-8 (Version None)
Quarter: 2009Q1

REPORT INFORMATION
  Report Type: 
  Country: None (occurrence: None)
  Receive Date: 20090304
  Receipt Date: 20090304
  Transmission Date: 20090719
  Serious: Yes (Hospitalization)
  Sender: FDA-Public Use
  Company Number: None

PATIENT
  Sex: Male
  Weight: 92.08 kg

DRUGS (4)
  1. CYCLOPHOSPHAMIDE [Suspect]
     Dosage: 1635 MG
     Dates: end: 20090114
  2. DOXORUBICIN HYDROCHLORIDE [Suspect]
     Dosage: 109 MG
     Dates: end: 20090114
  3. PREDNISONE TAB [Suspect]
     Dosage: 100 MG
     Dates: end: 20090118
  4. VINCRISTINE SULFATE [Suspect]
     Dosage: 2 MG
     Dates: end: 20090114

REACTIONS (3)
  - CYTOMEGALOVIRUS INFECTION [None]
  - FEBRILE NEUTROPENIA [None]
  - SINUSITIS [None]
